FAERS Safety Report 8771664 (Version 1)
Quarter: 2012Q4

REPORT INFORMATION
  Report Type: 
  Country: US (occurrence: US)
  Receive Date: 20120906
  Receipt Date: 20120906
  Transmission Date: 20130627
  Serious: No
  Sender: FDA-Public Use
  Company Number: US-TEVA-357670USA

PATIENT
  Age: 35 Year
  Sex: Female
  Weight: 113.5 kg

DRUGS (4)
  1. PLAN B ONE-STEP [Suspect]
     Indication: POST COITAL CONTRACEPTION
     Dosage: 1.5 Milligram Daily;
     Route: 048
     Dates: start: 20120827, end: 20120827
  2. ZYRTEC [Concomitant]
     Indication: HYPERSENSITIVITY
     Route: 048
  3. INHALER [Concomitant]
     Indication: ASTHMA
  4. MULTIVITAMIN [Concomitant]
     Indication: MEDICAL DIET
     Route: 048

REACTIONS (2)
  - Menstruation irregular [Not Recovered/Not Resolved]
  - Pelvic pain [Not Recovered/Not Resolved]
